FAERS Safety Report 7892697-9 (Version None)
Quarter: 2011Q4

REPORT INFORMATION
  Report Type: 
  Country: None (occurrence: None)
  Receive Date: 20111102
  Receipt Date: 20111020
  Transmission Date: 20120403
  Serious: Yes (Hospitalization, Other)
  Sender: FDA-Public Use
  Company Number: 2011SP044566

PATIENT
  Sex: Male

DRUGS (6)
  1. INTERFERON [Suspect]
     Indication: HEPATITIS C
     Dosage: TIW
     Dates: start: 20020101
  2. PEG-INTRON [Suspect]
     Indication: HEPATITIS C
     Dates: start: 20110910
  3. RIBAVIRIN [Suspect]
     Indication: HEPATITIS C
     Dates: start: 20020101
  4. RIBAVIRIN [Suspect]
     Indication: HEPATITIS C
     Dates: start: 19980101, end: 19981201
  5. RIBAVIRIN [Suspect]
     Indication: HEPATITIS C
     Dates: start: 20110910
  6. VICTRELIS [Suspect]
     Indication: HEPATITIS C
     Dates: start: 20110910

REACTIONS (10)
  - DIARRHOEA [None]
  - LOSS OF CONSCIOUSNESS [None]
  - DYSPNOEA [None]
  - ANAEMIA [None]
  - VOMITING [None]
  - VIRAL LOAD INCREASED [None]
  - DEHYDRATION [None]
  - WEIGHT DECREASED [None]
  - CEREBROVASCULAR ACCIDENT [None]
  - THROMBOSIS [None]
